FAERS Safety Report 13269690 (Version 1)
Quarter: 2017Q1

REPORT INFORMATION
  Report Type: Spontaneous
  Country: US (occurrence: US)
  Receive Date: 20170224
  Receipt Date: 20170224
  Transmission Date: 20170428
  Serious: No
  Sender: FDA-Public Use
  Company Number: US-009507513-1702USA004181

PATIENT
  Age: 83 Year
  Sex: Female

DRUGS (2)
  1. BELSOMRA [Suspect]
     Active Substance: SUVOREXANT
     Indication: INSOMNIA
     Dosage: 20 MG, QD
     Route: 048
  2. BELSOMRA [Suspect]
     Active Substance: SUVOREXANT
     Dosage: ^CUT THE DOSE IN HALF^ TO 10 MG, QD
     Route: 048

REACTIONS (4)
  - Therapeutic response decreased [Unknown]
  - Intentional product misuse [Unknown]
  - Intentional underdose [Unknown]
  - Paraesthesia [Recovered/Resolved]
